FAERS Safety Report 7073838-2 (Version None)
Quarter: 2010Q4

REPORT INFORMATION
  Report Type: 
  Country: None (occurrence: None)
  Receive Date: 20101029
  Receipt Date: 20100823
  Transmission Date: 20110411
  Serious: No
  Sender: FDA-Public Use
  Company Number: A0877253A

PATIENT
  Sex: Male

DRUGS (7)
  1. ADVAIR DISKUS 100/50 [Suspect]
     Indication: EMPHYSEMA
     Dosage: 1PUFF TWICE PER DAY
     Route: 055
     Dates: end: 20100501
  2. BLOOD THINNER [Concomitant]
  3. WARFARIN SODIUM [Concomitant]
  4. ZOLOFT [Concomitant]
  5. ISOSORBID MONONITRATE [Concomitant]
  6. PLAVIX [Concomitant]
  7. AMBIEN [Concomitant]

REACTIONS (2)
  - DRUG INEFFECTIVE [None]
  - DYSPNOEA [None]
